FAERS Safety Report 8163486-5 (Version None)
Quarter: 2012Q1

REPORT INFORMATION
  Report Type: 
  Country: None (occurrence: None)
  Receive Date: 20120224
  Receipt Date: 20120221
  Transmission Date: 20120608
  Serious: Yes (Hospitalization)
  Sender: FDA-Public Use
  Company Number: GB-MERCK-1202GBR00120

PATIENT
  Age: 63 Year
  Sex: Female

DRUGS (6)
  1. CALCIUM CARBONATE AND CHOLECALCIFEROL [Concomitant]
     Route: 065
  2. IBUPROFEN [Suspect]
     Route: 048
  3. FOSAMAX [Suspect]
     Indication: OSTEOPOROSIS
     Route: 048
  4. DOCUSATE SODIUM [Concomitant]
     Route: 065
  5. OXERUTINS [Concomitant]
     Route: 065
  6. POLYETHYLENE GLYCOL 3350 AND POTASSIUM CHLORIDE AND SODIUM BICARBONATE [Concomitant]
     Route: 065

REACTIONS (2)
  - DUODENAL ULCER HAEMORRHAGE [None]
  - OESOPHAGEAL ULCER [None]
